FAERS Safety Report 8859225 (Version 1)
Quarter: 2012Q4

REPORT INFORMATION
  Report Type: 
  Country: US (occurrence: US)
  Receive Date: 20121024
  Receipt Date: 20121024
  Transmission Date: 20130627
  Serious: Yes (Other)
  Sender: FDA-Public Use
  Company Number: US-SANOFI-AVENTIS-2012SA075454

PATIENT
  Age: 57 Year
  Sex: Female
  Weight: 67 kg

DRUGS (14)
  1. AMBIEN [Suspect]
     Indication: INSOMNIA
     Route: 065
  2. AMBIEN [Suspect]
     Indication: SLEEP APNEA
     Route: 065
  3. TOPAMAX [Suspect]
     Indication: SEIZURES
     Route: 065
  4. HYDROCODONE [Concomitant]
     Indication: MIGRAINE
  5. HYDROCODONE [Concomitant]
     Indication: ARTHRITIS
  6. ATENOLOL [Concomitant]
     Indication: BLOOD PRESSURE HIGH
  7. LISINOPRIL [Concomitant]
     Indication: BLOOD PRESSURE HIGH
  8. ZYRTEC [Concomitant]
     Indication: ALLERGY
  9. LEVOTHYROXINE [Concomitant]
     Indication: THYROID DISORDER
  10. CYTOMEL [Concomitant]
     Indication: THYROID DISORDER
  11. TEMAZEPAM [Concomitant]
     Indication: SLEEP DISORDER
  12. EFFIENT [Concomitant]
     Indication: ANTICOAGULANT THERAPY
  13. FUROSEMIDE [Concomitant]
  14. POTASSIUM [Concomitant]
     Indication: POTASSIUM LOW

REACTIONS (10)
  - Somnolence [Unknown]
  - Road traffic accident [Unknown]
  - Cerebrovascular accident [Unknown]
  - Convulsion [Unknown]
  - Weight increased [Unknown]
  - Ill-defined disorder [Unknown]
  - Fibromyalgia [Unknown]
  - Weight decreased [Unknown]
  - Discomfort [Unknown]
  - Aphagia [Recovered/Resolved]
